FAERS Safety Report 6636923-2 (Version None)
Quarter: 2010Q1

REPORT INFORMATION
  Report Type: 
  Country: None (occurrence: None)
  Receive Date: 20100316
  Receipt Date: 20100305
  Transmission Date: 20100710
  Serious: Yes (Hospitalization)
  Sender: FDA-Public Use
  Company Number: FR-BRISTOL-MYERS SQUIBB COMPANY-15004294

PATIENT
  Age: 73 Year
  Sex: Male

DRUGS (9)
  1. SPRYCEL [Suspect]
     Route: 065
     Dates: start: 20091113, end: 20091118
  2. GLEEVEC [Suspect]
     Indication: CHRONIC MYELOID LEUKAEMIA
     Route: 065
     Dates: start: 20070206, end: 20091112
  3. IKOREL [Concomitant]
     Dates: start: 20080101
  4. ISOPTIN [Concomitant]
     Dates: start: 20070101
  5. LOXEN [Concomitant]
     Dates: start: 20091122
  6. LASILIX [Concomitant]
     Dates: start: 20090901
  7. VASTEN [Concomitant]
     Dates: start: 20070101
  8. PLAVIX [Concomitant]
  9. KARDEGIC [Concomitant]

REACTIONS (8)
  - BLOOD CREATININE INCREASED [None]
  - BLOOD PRESSURE INCREASED [None]
  - BUNDLE BRANCH BLOCK RIGHT [None]
  - CARDIOMEGALY [None]
  - HYPOKALAEMIA [None]
  - LEFT VENTRICULAR HYPERTROPHY [None]
  - PULMONARY OEDEMA [None]
  - TROPONIN INCREASED [None]
